FAERS Safety Report 15432203 (Version 1)
Quarter: 2018Q3

REPORT INFORMATION
  Report Type: Report from Study
  Country: US (occurrence: US)
  Receive Date: 20180926
  Receipt Date: 20180926
  Transmission Date: 20181010
  Serious: Yes (Hospitalization, Other)
  Sender: FDA-Public Use
  Company Number: US-NOVOPROD-623136

PATIENT
  Age: 76 Year
  Sex: Male

DRUGS (1)
  1. VICTOZA [Suspect]
     Active Substance: LIRAGLUTIDE
     Indication: TYPE 2 DIABETES MELLITUS
     Dosage: UNK, QD IN THE MORNING
     Route: 058
     Dates: start: 2014

REACTIONS (6)
  - Cholecystitis infective [Recovered/Resolved]
  - Gallbladder disorder [Recovered/Resolved]
  - Cholelithiasis [Recovered/Resolved]
  - Vitamin B12 decreased [Recovered/Resolved]
  - Blood iron decreased [Recovered/Resolved]
  - Platelet count decreased [Recovered/Resolved]

NARRATIVE: CASE EVENT DATE: 2016
